FAERS Safety Report 19627892 (Version 1)
Quarter: 2021Q3

REPORT INFORMATION
  Report Type: Report from Study
  Country: None (occurrence: US)
  Receive Date: 20210729
  Receipt Date: 20210729
  Transmission Date: 20211014
  Serious: Yes (Other)
  Sender: FDA-Public Use
  Company Number: US-ABBVIE-21K-163-4004069-00

PATIENT
  Sex: Male

DRUGS (1)
  1. RINVOQ [Suspect]
     Active Substance: UPADACITINIB
     Indication: RHEUMATOID ARTHRITIS
     Route: 048

REACTIONS (7)
  - Coronary arterial stent insertion [Recovering/Resolving]
  - Exostosis [Unknown]
  - Laboratory test abnormal [Unknown]
  - Chest pain [Unknown]
  - Nausea [Unknown]
  - Glycosylated haemoglobin increased [Unknown]
  - Rheumatoid arthritis [Unknown]

NARRATIVE: CASE EVENT DATE: 2021
